FAERS Safety Report 4900480-9 (Version None)
Quarter: 2006Q1

REPORT INFORMATION
  Report Type: 
  Country: None (occurrence: None)
  Receive Date: 20060203
  Receipt Date: 20051209
  Transmission Date: 20060701
  Serious: Yes (Hospitalization)
  Sender: FDA-Public Use
  Company Number: US-MERCK-0512USA01800

PATIENT
  Age: 64 Year
  Sex: Male
  Weight: 75 kg

DRUGS (9)
  1. VIOXX [Suspect]
     Indication: ARTHRITIS
     Route: 048
     Dates: end: 20000101
  2. RELAFEN [Concomitant]
     Route: 065
  3. PREDNISONE [Concomitant]
     Route: 065
  4. CELEBREX [Concomitant]
     Route: 065
  5. THEO-DUR [Concomitant]
     Route: 065
  6. ALUPENT [Concomitant]
     Route: 065
  7. PRIMATENE MIST [Concomitant]
     Route: 065
  8. AEROBID [Concomitant]
     Route: 065
  9. KEFLEX [Concomitant]
     Route: 065

REACTIONS (2)
  - ISCHAEMIC STROKE [None]
  - MYOCARDIAL INFARCTION [None]
